FAERS Safety Report 7008731-4 (Version None)
Quarter: 2010Q3

REPORT INFORMATION
  Report Type: 
  Country: None (occurrence: None)
  Receive Date: 20100921
  Receipt Date: 20100915
  Transmission Date: 20110219
  Serious: Yes (Other)
  Sender: FDA-Public Use
  Company Number: 2010SP049514

PATIENT
  Age: 12 Year
  Sex: Male
  Weight: 39.4 kg

DRUGS (1)
  1. BETAMETHASONE/DEXCHLORPHENIRAMINE MALEATE (BETAMETHASONE/DEXCHLORPHENI [Suspect]
     Indication: PRODUCT USED FOR UNKNOWN INDICATION

REACTIONS (2)
  - FAILURE TO THRIVE [None]
  - SOMATOFORM DISORDER [None]
